FAERS Safety Report 4848358-3 (Version None)
Quarter: 2005Q4

REPORT INFORMATION
  Report Type: 
  Country: None (occurrence: None)
  Receive Date: 20051116
  Receipt Date: 20050808
  Transmission Date: 20060501
  Serious: Yes (Other)
  Sender: FDA-Public Use
  Company Number: 413636

PATIENT
  Age: 39 Year
  Sex: Male

DRUGS (5)
  1. PEGASYS [Suspect]
     Indication: HEPATITIS C VIRUS
     Dosage: 180 MCG 1 PER WEEK
     Dates: start: 20050715, end: 20050731
  2. RIBASPHERE [Suspect]
     Indication: HEPATITIS C VIRUS
     Dosage: 200 MG 5 PER 1 DAY ORAL
     Route: 048
     Dates: start: 20050715, end: 20050731
  3. RISPERDAL [Concomitant]
  4. BUSPAR (BUSIPRONE HYDROCHLORIDE) [Concomitant]
  5. KEPPRA [Concomitant]

REACTIONS (3)
  - ANOREXIA [None]
  - FATIGUE [None]
  - SUICIDE ATTEMPT [None]
